FAERS Safety Report 24706233 (Version 1)
Quarter: 2024Q4

REPORT INFORMATION
  Report Type: Spontaneous
  Country: CN (occurrence: CN)
  Receive Date: 20241206
  Receipt Date: 20241206
  Transmission Date: 20250114
  Serious: Yes (Other)
  Sender: BAYER HEALTHCARE PHARMACEUTICALS INC.
  Company Number: CN-BAYER-2024A172697

PATIENT
  Age: 62 Year
  Sex: Male
  Weight: 76 kg

DRUGS (2)
  1. AVELOX [Suspect]
     Active Substance: MOXIFLOXACIN HYDROCHLORIDE
     Indication: Herpes zoster oticus
     Dosage: 250 ML, QD
     Route: 041
     Dates: start: 20241127, end: 20241128
  2. AVELOX [Suspect]
     Active Substance: MOXIFLOXACIN HYDROCHLORIDE
     Indication: Antiinflammatory therapy

REACTIONS (4)
  - Erythema [Recovering/Resolving]
  - Auricular swelling [Recovering/Resolving]
  - Product prescribing issue [None]
  - Product use in unapproved indication [None]

NARRATIVE: CASE EVENT DATE: 20241127
